FAERS Safety Report 9988734 (Version 1)
Quarter: 2014Q1

REPORT INFORMATION
  Report Type: Spontaneous
  Country: US (occurrence: US)
  Receive Date: 20140310
  Receipt Date: 20140310
  Transmission Date: 20141002
  Serious: Yes (Hospitalization)
  Sender: FDA-Public Use
  Company Number: US-AMGEN-USASP2014015457

PATIENT
  Age: 76 Year
  Sex: Female

DRUGS (9)
  1. PROLIA [Suspect]
     Indication: PRODUCT USED FOR UNKNOWN INDICATION
     Dosage: UNK
     Route: 065
  2. PRADAXA [Concomitant]
  3. SYNTHROID [Concomitant]
  4. SERTRALINE [Concomitant]
  5. METOPROLOL [Concomitant]
  6. KLONOPIN [Concomitant]
  7. BENICAR [Concomitant]
  8. FUROSEMIDE [Concomitant]
     Dosage: UNK UNK, AS NECESSARY
  9. NITROGLYCERIN [Concomitant]
     Dosage: UNK UNK, AS NECESSARY

REACTIONS (4)
  - Cardiac disorder [Unknown]
  - Lung disorder [Unknown]
  - Cystitis [Recovered/Resolved]
  - Nasopharyngitis [Recovered/Resolved]
